FAERS Safety Report 13207638 (Version 1)
Quarter: 2017Q1

REPORT INFORMATION
  Report Type: Spontaneous
  Country: US (occurrence: US)
  Receive Date: 20170209
  Receipt Date: 20170209
  Transmission Date: 20170428
  Serious: No
  Sender: FDA-Public Use
  Company Number: US-MEDA-2017010104

PATIENT
  Age: 60 Year
  Sex: Male
  Weight: 88 kg

DRUGS (4)
  1. LIPITOR [Concomitant]
     Active Substance: ATORVASTATIN CALCIUM
  2. CIALIS [Concomitant]
     Active Substance: TADALAFIL
  3. VIAGRA [Concomitant]
     Active Substance: SILDENAFIL CITRATE
  4. MUSE [Suspect]
     Active Substance: ALPROSTADIL
     Indication: ERECTILE DYSFUNCTION
     Route: 066
     Dates: start: 201701

REACTIONS (2)
  - Drug ineffective [Unknown]
  - Application site warmth [Recovered/Resolved]

NARRATIVE: CASE EVENT DATE: 201701
